FAERS Safety Report 8391217-2 (Version None)
Quarter: 2012Q2

REPORT INFORMATION
  Report Type: 
  Country: None (occurrence: None)
  Receive Date: 20120529
  Receipt Date: 20120517
  Transmission Date: 20120825
  Serious: Yes (Other)
  Sender: FDA-Public Use
  Company Number: JP-SANOFI-AVENTIS-2012SA026846

PATIENT
  Age: 58 Year
  Sex: Female
  Weight: 25.5 kg

DRUGS (8)
  1. ALLOPURINOL [Concomitant]
     Route: 048
  2. RIZE [Concomitant]
     Route: 048
  3. TEGRETOL [Concomitant]
     Route: 048
  4. SLOW-K [Concomitant]
     Route: 048
     Dates: start: 20120410
  5. CEFAZOLIN SODIUM [Concomitant]
     Route: 048
     Dates: start: 20120411
  6. FERROUS SULFATE TAB [Concomitant]
     Route: 048
     Dates: start: 20120411
  7. LASIX [Suspect]
     Route: 048
  8. ARTIFICIAL TEARS [Concomitant]
     Dosage: 5 TIMES PER DAY
     Route: 047

REACTIONS (4)
  - METABOLIC ALKALOSIS [None]
  - PSEUDO-BARTTER SYNDROME [None]
  - HYPOKALAEMIA [None]
  - RENAL CYST [None]
